FAERS Safety Report 10412514 (Version 1)
Quarter: 2014Q3

REPORT INFORMATION
  Report Type: Spontaneous
  Country: MX (occurrence: MX)
  Receive Date: 20140827
  Receipt Date: 20140827
  Transmission Date: 20150326
  Serious: Yes (Hospitalization)
  Sender: FDA-Public Use
  Company Number: MX-SA-2014SA114752

PATIENT
  Age: 72 Year
  Sex: Female
  Weight: 60 kg

DRUGS (6)
  1. METFORMIN [Concomitant]
     Active Substance: METFORMIN HYDROCHLORIDE
     Indication: TYPE 2 DIABETES MELLITUS
  2. NORMAL SALINE [Concomitant]
     Active Substance: SODIUM CHLORIDE
     Indication: NASAL CONGESTION
     Route: 045
     Dates: start: 20140804
  3. ALLEGRA [Suspect]
     Active Substance: FEXOFENADINE HYDROCHLORIDE
     Indication: NASAL CONGESTION
     Route: 048
     Dates: start: 20140804, end: 20140809
  4. NORMAL SALINE [Concomitant]
     Active Substance: SODIUM CHLORIDE
     Indication: RHINORRHOEA
     Route: 045
     Dates: start: 20140804
  5. CAPTOPRIL. [Concomitant]
     Active Substance: CAPTOPRIL
     Indication: HYPERTENSION
  6. ALLEGRA [Suspect]
     Active Substance: FEXOFENADINE HYDROCHLORIDE
     Indication: RHINORRHOEA
     Route: 048
     Dates: start: 20140804, end: 20140809

REACTIONS (4)
  - Glossitis [Recovered/Resolved]
  - Paraesthesia oral [Recovered/Resolved]
  - Respiratory distress [Recovered/Resolved]
  - Hypersensitivity [Recovered/Resolved]

NARRATIVE: CASE EVENT DATE: 20140807
